FAERS Safety Report 10936261 (Version 1)
Quarter: 2015Q1

REPORT INFORMATION
  Report Type: Spontaneous
  Country: US (occurrence: None)
  Receive Date: 20150320
  Receipt Date: 20150320
  Transmission Date: 20150721
  Serious: Yes (Life-Threatening, Hospitalization, Disabling, Other)
  Sender: FDA-Public Use
  Company Number: None

PATIENT
  Age: 44 Year
  Sex: Male
  Weight: 93.9 kg

DRUGS (4)
  1. DEPO-TESTOSTERONE [Suspect]
     Active Substance: TESTOSTERONE CYPIONATE
     Indication: BLOOD CORTISOL DECREASED
     Dosage: 200 ML PER 2 WEEKS 75 ML ODD WEEKS, 200 ML EVERY 2 WEEK, INTO THE MUSCLE.
     Route: 030
     Dates: start: 20010331, end: 20150315
  2. DEPO-TESTOSTERONE [Suspect]
     Active Substance: TESTOSTERONE CYPIONATE
     Indication: ADDISON^S DISEASE
     Dosage: 200 ML PER 2 WEEKS 75 ML ODD WEEKS, 200 ML EVERY 2 WEEK, INTO THE MUSCLE.
     Route: 030
     Dates: start: 20010331, end: 20150315
  3. DEPO-TESTOSTERONE [Suspect]
     Active Substance: TESTOSTERONE CYPIONATE
     Indication: ASTHENIA
     Dosage: 200 ML PER 2 WEEKS 75 ML ODD WEEKS, 200 ML EVERY 2 WEEK, INTO THE MUSCLE.
     Route: 030
     Dates: start: 20010331, end: 20150315
  4. DEPO-TESTOSTERONE [Suspect]
     Active Substance: TESTOSTERONE CYPIONATE
     Indication: FATIGUE
     Dosage: 200 ML PER 2 WEEKS 75 ML ODD WEEKS, 200 ML EVERY 2 WEEK, INTO THE MUSCLE.
     Route: 030
     Dates: start: 20010331, end: 20150315

REACTIONS (5)
  - Blood potassium decreased [None]
  - Fatigue [None]
  - Asthenia [None]
  - Unevaluable event [None]
  - Impaired work ability [None]

NARRATIVE: CASE EVENT DATE: 20010315
